FAERS Safety Report 11079041 (Version 1)
Quarter: 2015Q2

REPORT INFORMATION
  Report Type: Spontaneous
  Country: US (occurrence: US)
  Receive Date: 20150430
  Receipt Date: 20150430
  Transmission Date: 20150821
  Serious: Yes (Hospitalization)
  Sender: FDA-Public Use
  Company Number: US-INCYTE CORPORATION-2015IN001768

PATIENT
  Age: 70 Year
  Sex: Male

DRUGS (19)
  1. AZITHROMYCIN [Concomitant]
     Active Substance: AZITHROMYCIN ANHYDROUS
  2. MAGNESIUM                          /00123201/ [Concomitant]
  3. FENOFIBRATE. [Concomitant]
     Active Substance: FENOFIBRATE
  4. JANUVIA [Concomitant]
     Active Substance: SITAGLIPTIN PHOSPHATE
  5. XOPENEX [Concomitant]
     Active Substance: LEVALBUTEROL HYDROCHLORIDE
  6. JAKAFI [Suspect]
     Active Substance: RUXOLITINIB
     Dosage: 15 MG, BID
     Route: 048
  7. ALPRAZOLAM. [Concomitant]
     Active Substance: ALPRAZOLAM
  8. HYDROXYUREA. [Concomitant]
     Active Substance: HYDROXYUREA
  9. NITROGLYCERINE [Concomitant]
     Active Substance: NITROGLYCERIN
  10. PREDNISONE. [Concomitant]
     Active Substance: PREDNISONE
  11. ALBUTEROL                          /00139501/ [Concomitant]
     Active Substance: ALBUTEROL
  12. FLUOXETINE [Concomitant]
     Active Substance: FLUOXETINE\FLUOXETINE HYDROCHLORIDE
  13. PANTOPRAZOLE [Concomitant]
     Active Substance: PANTOPRAZOLE SODIUM
  14. VANCOMYCIN [Concomitant]
     Active Substance: VANCOMYCIN
  15. JAKAFI [Suspect]
     Active Substance: RUXOLITINIB
     Dosage: 20 MG, BID
     Route: 048
  16. BUDESONIDE. [Concomitant]
     Active Substance: BUDESONIDE
  17. MUCINEX [Concomitant]
     Active Substance: GUAIFENESIN
  18. METOPROLOL [Concomitant]
     Active Substance: METOPROLOL
  19. SYNTHROID [Concomitant]
     Active Substance: LEVOTHYROXINE SODIUM

REACTIONS (2)
  - White blood cell count increased [Unknown]
  - Surgery [Unknown]

NARRATIVE: CASE EVENT DATE: 20150409
